FAERS Safety Report 5262913-0 (Version None)
Quarter: 2007Q1

REPORT INFORMATION
  Report Type: 
  Country: None (occurrence: None)
  Receive Date: 20070312
  Receipt Date: 20070227
  Transmission Date: 20070707
  Serious: Yes (Other)
  Sender: FDA-Public Use
  Company Number: PHBS2007JP03508

PATIENT
  Age: 48 Year
  Sex: Male

DRUGS (7)
  1. CYCLOSPORINE [Suspect]
     Indication: STEM CELL TRANSPLANT
     Route: 065
  2. BUSULFAN [Suspect]
     Indication: STEM CELL TRANSPLANT
     Route: 065
  3. CYCLOPHOSPHAMIDE [Suspect]
     Indication: STEM CELL TRANSPLANT
     Route: 065
  4. METHOTREXATE [Concomitant]
     Indication: STEM CELL TRANSPLANT
     Route: 065
  5. TACROLIMUS [Suspect]
     Indication: STEM CELL TRANSPLANT
     Route: 065
  6. MYCOPHENOLATE MOFETIL [Suspect]
     Indication: ACUTE GRAFT VERSUS HOST DISEASE IN INTESTINE
     Route: 065
  7. GANCICLOVIR [Suspect]
     Route: 065

REACTIONS (19)
  - ACUTE GRAFT VERSUS HOST DISEASE IN INTESTINE [None]
  - ANOREXIA [None]
  - APLASIA PURE RED CELL [None]
  - BLOOD COPPER DECREASED [None]
  - BLOOD MAGNESIUM DECREASED [None]
  - BLOOD ZINC DECREASED [None]
  - BONE MARROW FAILURE [None]
  - CHRONIC GRAFT VERSUS HOST DISEASE [None]
  - DIARRHOEA [None]
  - DRY MOUTH [None]
  - DYSGEUSIA [None]
  - GASTROINTESTINAL MUCOSAL DISORDER [None]
  - GRANULOCYTES MATURATION ARREST [None]
  - MALNUTRITION [None]
  - MARROW HYPERPLASIA [None]
  - PANCYTOPENIA [None]
  - PIGMENTATION DISORDER [None]
  - TRACE ELEMENT DEFICIENCY [None]
  - WEIGHT DECREASED [None]
